FAERS Safety Report 18664262 (Version 1)
Quarter: 2020Q4

REPORT INFORMATION
  Report Type: Spontaneous
  Country: FI (occurrence: FI)
  Receive Date: 20201225
  Receipt Date: 20201225
  Transmission Date: 20210114
  Serious: Yes (Other)
  Sender: FDA-Public Use
  Company Number: FI-TEVA-2020-FI-1860771

PATIENT
  Age: 74 Year
  Sex: Male

DRUGS (7)
  1. PREDNISOLON [Suspect]
     Active Substance: PREDNISOLONE
     Indication: CONNECTIVE TISSUE DISORDER
     Route: 065
  2. CANDESARTAN ORION [Suspect]
     Active Substance: CANDESARTAN
     Indication: HYPERTENSION
     Route: 065
     Dates: start: 2019, end: 202010
  3. THYROXIN [Suspect]
     Active Substance: LEVOTHYROXINE
     Indication: HYPOTHYROIDISM
     Route: 065
  4. BISOPROLOL ORION [Suspect]
     Active Substance: BISOPROLOL
     Indication: HYPERTENSION
     Route: 065
     Dates: start: 2019
  5. ATORVASTATIN ORION [Suspect]
     Active Substance: ATORVASTATIN CALCIUM
     Indication: HYPERLIPIDAEMIA
     Route: 065
     Dates: start: 2019
  6. OXIKLORIN [Suspect]
     Active Substance: HYDROXYCHLOROQUINE SULFATE
     Indication: CONNECTIVE TISSUE DISORDER
     Route: 065
     Dates: end: 202010
  7. AMLODIPIN ORION [AMLODIPINE MALEATE] [Suspect]
     Active Substance: AMLODIPINE MALEATE
     Indication: HYPERTENSION
     Dosage: UNK
     Route: 065
     Dates: start: 2019

REACTIONS (6)
  - Glomerular filtration rate decreased [Unknown]
  - Lung disorder [Unknown]
  - Hypothyroidism [Unknown]
  - Prothrombin time prolonged [Unknown]
  - Asthma [Unknown]
  - Blood creatinine increased [Unknown]

NARRATIVE: CASE EVENT DATE: 2020
